FAERS Safety Report 13834954 (Version 3)
Quarter: 2017Q3

REPORT INFORMATION
  Report Type: Spontaneous
  Country: IT (occurrence: IT)
  Receive Date: 20170804
  Receipt Date: 20170810
  Transmission Date: 20171127
  Serious: Yes (Hospitalization, Other)
  Sender: FDA-Public Use
  Company Number: IT-GLAXOSMITHKLINE-IT2017GSK119803

PATIENT
  Age: 63 Year
  Sex: Male
  Weight: 70 kg

DRUGS (6)
  1. BRUFEN [Concomitant]
     Active Substance: IBUPROFEN
     Dosage: UNK
     Dates: start: 20170701, end: 20170705
  2. VOLTAREN [Suspect]
     Active Substance: DICLOFENAC SODIUM
     Dosage: 75 MG, QD (SOLUTION FOR INJECTION)
     Route: 030
     Dates: start: 20170623, end: 20170627
  3. TARGIN [Suspect]
     Active Substance: NALOXONE HYDROCHLORIDE\OXYCODONE HYDROCHLORIDE
     Indication: PRODUCT USED FOR UNKNOWN INDICATION
     Dosage: 2 DF, QD (NALO 2.5 MG +OXYC 5 MG)
     Route: 048
     Dates: start: 20170628, end: 20170630
  4. BENTELAN (BETAMETHASONE SODIUM PHOSPHATE) [Suspect]
     Active Substance: BETAMETHASONE SODIUM PHOSPHATE
     Indication: PRODUCT USED FOR UNKNOWN INDICATION
     Dosage: 1.5 MG, QD
     Route: 030
     Dates: start: 20170628, end: 20170630
  5. MUSCORIL [Suspect]
     Active Substance: THIOCOLCHICOSIDE
     Indication: PRODUCT USED FOR UNKNOWN INDICATION
     Dosage: 4 MG, QD
     Route: 030
     Dates: start: 20170623, end: 20170627
  6. VOLTAREN [Suspect]
     Active Substance: DICLOFENAC SODIUM
     Indication: SPINAL PAIN
     Dosage: 100 MG, BID (EXTENDED-RELEASE TABLET)
     Route: 048
     Dates: start: 20170620, end: 20170622

REACTIONS (4)
  - Hepatic necrosis [Unknown]
  - Melaena [Recovering/Resolving]
  - Jaundice [Recovering/Resolving]
  - Anaemia [Recovering/Resolving]

NARRATIVE: CASE EVENT DATE: 20170711
